FAERS Safety Report 9695109 (Version 2)
Quarter: 2014Q1

REPORT INFORMATION
  Report Type: Report from Study
  Country: BR (occurrence: BR)
  Receive Date: 20131119
  Receipt Date: 20140210
  Transmission Date: 20141002
  Serious: Yes (Death, Other)
  Sender: FDA-Public Use
  Company Number: PHHY2013BR131665

PATIENT
  Sex: Male
  Weight: 90 kg

DRUGS (6)
  1. EXELON PATCH [Suspect]
     Indication: DEMENTIA ALZHEIMER^S TYPE
     Dosage: 9.5 MG, DAILY
     Route: 062
  2. DICLOFENACO [Concomitant]
  3. INSULIN [Concomitant]
  4. CLOPIDOGREL [Concomitant]
  5. PASSIFLORA [Concomitant]
  6. HALDOL [Concomitant]

REACTIONS (5)
  - Pneumonia [Fatal]
  - Infection [Fatal]
  - Arthralgia [Unknown]
  - Cerebrovascular accident [Unknown]
  - Hallucination [Unknown]
